FAERS Safety Report 19955070 (Version 1)
Quarter: 2021Q4

REPORT INFORMATION
  Report Type: Report from Study
  Country: None (occurrence: CA)
  Receive Date: 20211014
  Receipt Date: 20211014
  Transmission Date: 20220303
  Serious: Yes (Other)
  Sender: FDA-Public Use
  Company Number: CA-ABBVIE-21K-028-4116793-00

PATIENT
  Age: 46 Year
  Sex: Male

DRUGS (2)
  1. HUMIRA [Suspect]
     Active Substance: ADALIMUMAB
     Indication: Crohn^s disease
     Route: 058
  2. HUMIRA [Suspect]
     Active Substance: ADALIMUMAB
     Route: 058

REACTIONS (7)
  - Intestinal anastomosis [Unknown]
  - Colitis [Unknown]
  - Large intestinal ulcer [Unknown]
  - Terminal ileitis [Unknown]
  - Large intestinal ulcer [Unknown]
  - Serum ferritin decreased [Not Recovered/Not Resolved]
  - Anastomotic ulcer [Unknown]

NARRATIVE: CASE EVENT DATE: 20150101
